FAERS Safety Report 6578822-0 (Version None)
Quarter: 2010Q1

REPORT INFORMATION
  Report Type: 
  Country: None (occurrence: None)
  Receive Date: 20100202
  Receipt Date: 20100118
  Transmission Date: 20100710
  Serious: Yes (Death)
  Sender: FDA-Public Use
  Company Number: 2010S1000090

PATIENT
  Age: 44 Year
  Sex: Female

DRUGS (8)
  1. OXYBUTYNIN CHLORIDE EXTENDED-RELEASE TABLETS USP 5MG, 10MG, AND 15MG [Suspect]
     Dosage: ; PO
     Route: 048
     Dates: end: 20080101
  2. TRICYCLIC ANTIDEPRESSANT [Suspect]
     Dosage: ; PO
     Route: 048
     Dates: end: 20080101
  3. FLUOXETINE [Suspect]
     Dosage: ; PO
     Route: 048
     Dates: end: 20080101
  4. DULOXETINE [Suspect]
     Dosage: ; PO
     Route: 048
     Dates: end: 20080101
  5. TRAZODONE [Suspect]
     Dosage: ; PO
     Route: 048
     Dates: end: 20080101
  6. METOCLOPRAMIDE HYDROCHLORIDE [Suspect]
     Dosage: ; PO
     Route: 048
     Dates: end: 20080101
  7. BENZODIAZEPINE [Suspect]
     Dosage: ; PO
     Route: 048
     Dates: end: 20080101
  8. ETHANOL [Suspect]
     Dosage: ; PO
     Route: 048
     Dates: end: 20080101

REACTIONS (3)
  - CARDIAC ARREST [None]
  - COMPLETED SUICIDE [None]
  - RESPIRATORY ARREST [None]
